FAERS Safety Report 6699510-6 (Version None)
Quarter: 2010Q2

REPORT INFORMATION
  Report Type: 
  Country: None (occurrence: None)
  Receive Date: 20100427
  Receipt Date: 20100427
  Transmission Date: 20101027
  Serious: Yes (Life-Threatening, Hospitalization)
  Sender: FDA-Public Use
  Company Number: None

PATIENT
  Age: 57 Year
  Sex: Male
  Weight: 86.1834 kg

DRUGS (1)
  1. CELEBREX [Suspect]
     Indication: BACK PAIN
     Dosage: 1 2X PER DAY PO
     Route: 048
     Dates: start: 20010725, end: 20091018

REACTIONS (4)
  - IMPAIRED WORK ABILITY [None]
  - MYOCARDIAL INFARCTION [None]
  - PROCEDURAL COMPLICATION [None]
  - SPINAL FRACTURE [None]
